FAERS Safety Report 23581758 (Version 1)
Quarter: 2024Q1

REPORT INFORMATION
  Report Type: Report from Study
  Country: US (occurrence: US)
  Receive Date: 20240229
  Receipt Date: 20240229
  Transmission Date: 20240410
  Serious: Yes (Other)
  Sender: FDA-Public Use
  Company Number: US-PFIZER INC-202400052287

PATIENT
  Age: 69 Year
  Sex: Female

DRUGS (4)
  1. BRAFTOVI [Suspect]
     Active Substance: ENCORAFENIB
     Dosage: 75 MG CAPSULE- TAKE 4 CAPSULES (300 MG) ONCE DAILY
     Dates: start: 202204
  2. BRAFTOVI [Suspect]
     Active Substance: ENCORAFENIB
     Dosage: UNK
  3. MEKTOVI [Suspect]
     Active Substance: BINIMETINIB
     Dosage: 15 MG TABLET-TAKE 2 TABLETS TWICE A DAY.
     Dates: start: 202204
  4. MEKTOVI [Suspect]
     Active Substance: BINIMETINIB
     Dosage: UNK

REACTIONS (4)
  - Macular degeneration [Unknown]
  - Blood pressure increased [Unknown]
  - Blood cholesterol increased [Recovered/Resolved]
  - Taste disorder [Recovered/Resolved]

NARRATIVE: CASE EVENT DATE: 20220101
